FAERS Safety Report 6290996-8 (Version None)
Quarter: 2009Q3

REPORT INFORMATION
  Report Type: 
  Country: None (occurrence: None)
  Receive Date: 20090729
  Receipt Date: 20090729
  Transmission Date: 20100115
  Serious: No
  Sender: FDA-Public Use
  Company Number: None

PATIENT
  Age: 56 Year
  Sex: Male
  Weight: 62.1428 kg

DRUGS (1)
  1. FENTANYL [Suspect]
     Indication: NEUROPATHY PERIPHERAL
     Dosage: 100 MICROGRAMS/HR. EVERY 72 HOURS TRANSDERMAL
     Route: 062
     Dates: start: 20090508, end: 20090522

REACTIONS (2)
  - BREAKTHROUGH PAIN [None]
  - PRODUCT SUBSTITUTION ISSUE [None]
